FAERS Safety Report 5287815-5 (Version None)
Quarter: 2007Q1

REPORT INFORMATION
  Report Type: 
  Country: None (occurrence: None)
  Receive Date: 20070109
  Receipt Date: 20061114
  Transmission Date: 20070707
  Serious: Yes (Other)
  Sender: FDA-Public Use
  Company Number: PERC20060082

PATIENT
  Age: 50 Year
  Sex: Female
  Weight: 68.0396 kg

DRUGS (3)
  1. PERCOCET [Suspect]
     Indication: INFECTION
     Dosage: 3-6 TABS /DAY PO
     Route: 048
     Dates: start: 19990101
  2. PERCOCET [Suspect]
     Indication: PAIN
     Dosage: 3-6 TABS /DAY PO
     Route: 048
     Dates: start: 19990101
  3. ZITHROMAX [Concomitant]

REACTIONS (2)
  - DRUG DEPENDENCE [None]
  - DRUG WITHDRAWAL SYNDROME [None]
